FAERS Safety Report 13960256 (Version 1)
Quarter: 2017Q3

REPORT INFORMATION
  Report Type: Spontaneous
  Country: CO (occurrence: CO)
  Receive Date: 20170912
  Receipt Date: 20170912
  Transmission Date: 20171128
  Serious: Yes (Other)
  Sender: FDA-Public Use
  Company Number: CO-BAYER-2017-171050

PATIENT
  Age: 27 Year
  Sex: Female

DRUGS (1)
  1. JAYDESS [Suspect]
     Active Substance: LEVONORGESTREL
     Dosage: 14 MCG/24HR, CONT
     Route: 015
     Dates: start: 20150619

REACTIONS (5)
  - Pregnancy with contraceptive device [Not Recovered/Not Resolved]
  - Device dislocation [Not Recovered/Not Resolved]
  - Retroplacental haematoma [Not Recovered/Not Resolved]
  - Haemorrhage in pregnancy [Not Recovered/Not Resolved]
  - Drug ineffective [None]

NARRATIVE: CASE EVENT DATE: 2017
